FAERS Safety Report 24202853 (Version 1)
Quarter: 2024Q3

REPORT INFORMATION
  Report Type: Report from Study
  Country: US (occurrence: None)
  Receive Date: 20240813
  Receipt Date: 20240813
  Transmission Date: 20241017
  Serious: Yes (Other)
  Sender: ASTRAZENECA
  Company Number: 2024A180408

PATIENT
  Sex: Female
  Weight: 54 kg

DRUGS (2)
  1. CALQUENCE [Suspect]
     Active Substance: ACALABRUTINIB
     Indication: Chronic lymphocytic leukaemia
     Route: 048
     Dates: start: 20240517
  2. IMATINIB [Concomitant]
     Active Substance: IMATINIB

REACTIONS (1)
  - Pulmonary oedema [Not Recovered/Not Resolved]
